FAERS Safety Report 4869221-8 (Version None)
Quarter: 2005Q4

REPORT INFORMATION
  Report Type: 
  Country: None (occurrence: None)
  Receive Date: 20051230
  Receipt Date: 20041130
  Transmission Date: 20060501
  Serious: Yes (Death, Life-Threatening, Hospitalization, Other)
  Sender: FDA-Public Use
  Company Number: PHHO2004JP17101

PATIENT
  Age: 66 Year
  Sex: Female

DRUGS (5)
  1. DIOVAN [Suspect]
     Indication: HYPERTENSION
     Dosage: 40 MG, QD
     Route: 048
     Dates: start: 20030611, end: 20041110
  2. WARFARIN [Suspect]
     Indication: PULMONARY EMBOLISM
     Dosage: 2.25 MG, UNK
     Route: 048
     Dates: start: 20010725, end: 20040714
  3. WARFARIN [Suspect]
     Dosage: 2 MG, UNK
     Route: 048
     Dates: start: 20040715, end: 20041110
  4. ZANTAC [Suspect]
     Indication: GASTRITIS
     Dosage: 150 MG, UNK
     Route: 048
     Dates: start: 20010725, end: 20041110
  5. GASTROM [Suspect]
     Indication: GASTROINTESTINAL DISORDER
     Dosage: 3 G, UNK
     Route: 048
     Dates: start: 20040929, end: 20041110

REACTIONS (9)
  - ASPIRATION BONE MARROW [None]
  - ASTHMA [None]
  - COUGH [None]
  - DYSPNOEA EXERTIONAL [None]
  - HERPES ZOSTER [None]
  - INCREASED UPPER AIRWAY SECRETION [None]
  - MYELOID LEUKAEMIA [None]
  - WHEEZING [None]
  - WHITE BLOOD CELL COUNT DECREASED [None]
